FAERS Safety Report 10188307 (Version 3)
Quarter: 2014Q2

REPORT INFORMATION
  Report Type: Spontaneous
  Country: CA (occurrence: None)
  Receive Date: 20140520
  Receipt Date: 20140625
  Transmission Date: 20141212
  Serious: Yes (Other)
  Sender: FDA-Public Use
  Company Number: VAL_03130_2014

PATIENT
  Age: 62 Year
  Sex: Male

DRUGS (2)
  1. LOPRESSOR (LOPRESSOR (METOPROLOL TARTRATE)) [Suspect]
     Indication: HYPERTENSION
     Route: 048
     Dates: start: 20121227, end: 20140414
  2. CIALIS (UNKNOWN) [Concomitant]

REACTIONS (7)
  - Palpitations [None]
  - Headache [None]
  - Malaise [None]
  - Chest discomfort [None]
  - Blood pressure increased [None]
  - Product quality issue [None]
  - Drug ineffective [None]
